FAERS Safety Report 23076222 (Version 1)
Quarter: 2023Q4

REPORT INFORMATION
  Report Type: Report from Study
  Country: CA (occurrence: CA)
  Receive Date: 20231017
  Receipt Date: 20231017
  Transmission Date: 20240110
  Serious: Yes (Other)
  Sender: FDA-Public Use
  Company Number: CA-TAKEDA-2023TUS098704

PATIENT
  Age: 24 Year
  Sex: Female

DRUGS (4)
  1. VEDOLIZUMAB [Suspect]
     Active Substance: VEDOLIZUMAB
     Indication: Crohn^s disease
     Dosage: 300 MILLIGRAM
     Route: 042
     Dates: start: 20220318
  2. VEDOLIZUMAB [Suspect]
     Active Substance: VEDOLIZUMAB
     Dosage: 300 MILLIGRAM, Q6WEEKS
     Route: 042
     Dates: start: 20220610
  3. BUDESONIDE [Concomitant]
     Active Substance: BUDESONIDE
     Dosage: UNK
     Dates: start: 20220304
  4. VIBERZI [Concomitant]
     Active Substance: ELUXADOLINE
     Dosage: UNK
     Dates: start: 201801

REACTIONS (4)
  - Cholangitis sclerosing [Unknown]
  - Contusion [Unknown]
  - Tenderness [Unknown]
  - Off label use [Unknown]

NARRATIVE: CASE EVENT DATE: 20220610
